FAERS Safety Report 15278952 (Version 1)
Quarter: 2018Q4

REPORT INFORMATION
  Report Type: Spontaneous
  Country: US (occurrence: US)
  Receive Date: 20180815
  Receipt Date: 20180815
  Transmission Date: 20190204
  Serious: No
  Sender: FDA-Public Use
  Company Number: US-ORIENT PHARMA-000006

PATIENT
  Sex: Female

DRUGS (1)
  1. CARISOPRODOL ORIENT PHARMA [Suspect]
     Active Substance: CARISOPRODOL
     Indication: PRODUCT USED FOR UNKNOWN INDICATION

REACTIONS (4)
  - Dyspepsia [Unknown]
  - Product substitution issue [Unknown]
  - Headache [Unknown]
  - Hypertension [Unknown]
